FAERS Safety Report 15124214 (Version 2)
Quarter: 2018Q3

REPORT INFORMATION
  Report Type: Report from Study
  Country: IT (occurrence: IT)
  Receive Date: 20180710
  Receipt Date: 20180821
  Transmission Date: 20181010
  Serious: Yes (Hospitalization)
  Sender: FDA-Public Use
  Company Number: IT-TEVA-2018-IT-923631

PATIENT
  Age: 23 Year
  Sex: Male

DRUGS (3)
  1. QUETIAPINA AUROBINDO 25 MG COMPRESSE RIVESTITE CON FILM [Suspect]
     Active Substance: QUETIAPINE FUMARATE
     Indication: BIPOLAR DISORDER
     Route: 048
     Dates: start: 20180522, end: 20180522
  2. ALPRAZOLAM ABC 1 MG COMPRESSE [Suspect]
     Active Substance: ALPRAZOLAM
     Indication: ANXIETY
     Route: 048
     Dates: start: 20180522, end: 20180522
  3. ZARELIS 225 MG COMPRESSA A RILASCIO PROLUNGATO [Concomitant]
     Indication: DEPRESSION
     Route: 048
     Dates: start: 20150101

REACTIONS (2)
  - Sopor [Recovered/Resolved]
  - Drug abuse [Recovered/Resolved]

NARRATIVE: CASE EVENT DATE: 20180522
